FAERS Safety Report 6680957-9 (Version None)
Quarter: 2010Q2

REPORT INFORMATION
  Report Type: 
  Country: None (occurrence: None)
  Receive Date: 20100413
  Receipt Date: 20100413
  Transmission Date: 20101027
  Serious: Yes (Hospitalization)
  Sender: FDA-Public Use
  Company Number: None

PATIENT
  Age: 48 Year
  Sex: Female
  Weight: 70.3075 kg

DRUGS (1)
  1. TECHNETIUM 99M MACROAGGREGATED ALBUMIN (HUMAN) [Suspect]
     Indication: BONE SCAN
     Dosage: ONE ONCE
     Dates: start: 20100406

REACTIONS (19)
  - APPARENT LIFE THREATENING EVENT [None]
  - BRONCHITIS [None]
  - CHEST DISCOMFORT [None]
  - CHEST PAIN [None]
  - DYSPNOEA [None]
  - EMOTIONAL DISORDER [None]
  - FATIGUE [None]
  - FEAR [None]
  - HYPOAESTHESIA ORAL [None]
  - LUNG DISORDER [None]
  - MIGRAINE [None]
  - MUSCLE SPASMS [None]
  - MUSCLE TIGHTNESS [None]
  - NO THERAPEUTIC RESPONSE [None]
  - PAIN [None]
  - PHARYNGEAL OEDEMA [None]
  - PNEUMONIA [None]
  - THROAT IRRITATION [None]
  - THROAT TIGHTNESS [None]
